FAERS Safety Report 4551527-3 (Version None)
Quarter: 2005Q1

REPORT INFORMATION
  Report Type: 
  Country: None (occurrence: None)
  Receive Date: 20050111
  Receipt Date: 20041231
  Transmission Date: 20050727
  Serious: Yes (Hospitalization)
  Sender: FDA-Public Use
  Company Number: CIP04002788

PATIENT
  Age: 1 Month
  Sex: Male

DRUGS (3)
  1. FURADANTIN [Suspect]
     Dosage: TRANSMAMMARY
     Route: 063
     Dates: start: 20041210, end: 20041215
  2. MONUROL [Suspect]
     Dosage: TRANSMAMMARY
     Route: 063
     Dates: start: 20041210, end: 20041210
  3. LEVOTHYROXINE SODIUM [Concomitant]

REACTIONS (2)
  - DRUG EXPOSURE VIA BREAST MILK [None]
  - VOMITING [None]
